FAERS Safety Report 5239493-9 (Version None)
Quarter: 2007Q1

REPORT INFORMATION
  Report Type: 
  Country: None (occurrence: None)
  Receive Date: 20070214
  Receipt Date: 20070214
  Transmission Date: 20070707
  Serious: Yes (Life-Threatening, Disabling)
  Sender: FDA-Public Use
  Company Number: None

PATIENT
  Sex: Male
  Weight: 91.8534 kg

DRUGS (1)
  1. MULTIHANCE [Suspect]
     Indication: NUCLEAR MAGNETIC RESONANCE IMAGING
     Dosage: ONCE
     Dates: start: 20061208, end: 20061208

REACTIONS (6)
  - BLOOD PRESSURE DECREASED [None]
  - ERYTHEMA [None]
  - FEELING COLD [None]
  - HYPERHIDROSIS [None]
  - RASH MACULAR [None]
  - TREMOR [None]
